FAERS Safety Report 25913854 (Version 9)
Quarter: 2025Q4

REPORT INFORMATION
  Report Type: Report from Study
  Country: CH (occurrence: CH)
  Receive Date: 20251013
  Receipt Date: 20251223
  Transmission Date: 20260118
  Serious: Yes (Other)
  Sender: TAKEDA
  Company Number: CH-JNJFOC-20251006099

PATIENT
  Age: 72 Year
  Sex: Male
  Weight: 68 kg

DRUGS (12)
  1. BORTEZOMIB [Suspect]
     Active Substance: BORTEZOMIB
     Indication: Plasma cell myeloma
     Dosage: UNK
     Dates: start: 20251001, end: 20251004
  2. BORTEZOMIB [Suspect]
     Active Substance: BORTEZOMIB
     Dosage: 2 MILLIGRAM
     Dates: start: 20251001, end: 20251004
  3. BORTEZOMIB [Suspect]
     Active Substance: BORTEZOMIB
     Dosage: 2 MILLIGRAM
     Dates: start: 20251004, end: 20251004
  4. TALQUETAMAB [Suspect]
     Active Substance: TALQUETAMAB
     Indication: Plasma cell myeloma
     Dosage: 0.01 MILLIGRAM/KILOGRAM
  5. TALQUETAMAB [Suspect]
     Active Substance: TALQUETAMAB
     Dosage: 0.06 MILLIGRAM/KILOGRAM
  6. TALQUETAMAB [Suspect]
     Active Substance: TALQUETAMAB
     Dosage: 0.4 MILLIGRAM/KILOGRAM
  7. TALQUETAMAB [Suspect]
     Active Substance: TALQUETAMAB
     Dosage: 0.4 MILLIGRAM/KILOGRAM
  8. TALQUETAMAB [Suspect]
     Active Substance: TALQUETAMAB
     Dosage: 0.4 MILLIGRAM/KILOGRAM
  9. TALQUETAMAB [Suspect]
     Active Substance: TALQUETAMAB
     Dosage: 0.4 MILLIGRAM/KILOGRAM
  10. CILTACABTAGENE AUTOLEUCEL [Suspect]
     Active Substance: CILTACABTAGENE AUTOLEUCEL
     Indication: Plasma cell myeloma
     Dosage: UNK
  11. VALTREX [Concomitant]
     Active Substance: VALACYCLOVIR HYDROCHLORIDE
     Indication: Prophylaxis
     Dosage: UNK
  12. BACTRIM [Concomitant]
     Active Substance: SULFAMETHOXAZOLE\TRIMETHOPRIM
     Indication: Prophylaxis
     Dosage: UNK

REACTIONS (15)
  - Platelet count decreased [Recovered/Resolved]
  - Immune effector cell-associated neurotoxicity syndrome [Unknown]
  - Cytokine release syndrome [Recovered/Resolved]
  - Acute kidney injury [Recovered/Resolved]
  - Chronic kidney disease [Not Recovered/Not Resolved]
  - Laryngeal inflammation [Recovered/Resolved]
  - Tremor [Recovered/Resolved]
  - Palmar-plantar erythrodysaesthesia syndrome [Recovered/Resolved]
  - Blood creatinine increased [Recovered/Resolved]
  - Neutrophil count decreased [Recovered/Resolved]
  - Nausea [Recovered/Resolved]
  - Diarrhoea [Recovered/Resolved]
  - Dysgeusia [Unknown]
  - Anaemia [Recovered/Resolved]
  - Dysphagia [Recovered/Resolved]

NARRATIVE: CASE EVENT DATE: 20251002
